FAERS Safety Report 4821139-2 (Version None)
Quarter: 2005Q4

REPORT INFORMATION
  Report Type: 
  Country: None (occurrence: None)
  Receive Date: 20051104
  Receipt Date: 20010927
  Transmission Date: 20060501
  Serious: Yes (Life-Threatening, Hospitalization, Disabling, Other)
  Sender: FDA-Public Use
  Company Number: JP-ABBOTT-01P-087-0111328-00

PATIENT
  Sex: Female

DRUGS (10)
  1. NORVIR [Suspect]
     Indication: HIV INFECTION
     Route: 048
     Dates: start: 20000801, end: 20010425
  2. STAVUDINE [Suspect]
     Indication: HIV INFECTION
     Route: 048
     Dates: start: 19981114, end: 20000601
  3. INDINAVIR SULFATE [Suspect]
     Indication: HIV INFECTION
     Route: 048
     Dates: start: 19990710, end: 20010425
  4. INDINAVIR SULFATE [Suspect]
     Route: 048
     Dates: start: 20000801, end: 20010425
  5. EFAVIRENZ [Suspect]
     Indication: HIV INFECTION
     Route: 048
     Dates: start: 20000530, end: 20000601
  6. ZIDOVUDINE [Concomitant]
     Indication: HIV INFECTION
     Route: 048
     Dates: start: 20000801
  7. LAMIVUDINE [Concomitant]
     Indication: HIV INFECTION
     Route: 048
     Dates: start: 19991101, end: 20000601
  8. LAMIVUDINE [Concomitant]
     Dates: start: 20000801
  9. BACTRIM [Concomitant]
     Indication: ANTIBIOTIC PROPHYLAXIS
     Route: 048
     Dates: start: 19991101, end: 20000601
  10. BACTRIM [Concomitant]
     Dates: start: 20000901

REACTIONS (8)
  - AIDS ENCEPHALOPATHY [None]
  - DISSEMINATED INTRAVASCULAR COAGULATION [None]
  - ENTEROBACTER BACTERAEMIA [None]
  - GASTROINTESTINAL FUNGAL INFECTION [None]
  - HYPERLIPIDAEMIA [None]
  - ILEUS [None]
  - PANCREATITIS ACUTE [None]
  - PSEUDOCYST [None]
